FAERS Safety Report 8821307 (Version 2)
Quarter: 2012Q4

REPORT INFORMATION
  Report Type: 
  Country: DK (occurrence: LU)
  Receive Date: 20121002
  Receipt Date: 20121018
  Transmission Date: 20130627
  Serious: Yes (Life-Threatening, Hospitalization, Disabling, Other)
  Sender: FDA-Public Use
  Company Number: LU-FRI-1000039087

PATIENT
  Age: 34 Year
  Sex: Female

DRUGS (1)
  1. DINOPROSTONE [Suspect]
     Indication: LABOUR INDUCTION
     Route: 067
     Dates: start: 20120525, end: 20120525

REACTIONS (3)
  - Syncope [Recovered/Resolved with Sequelae]
  - Postpartum haemorrhage [Recovered/Resolved with Sequelae]
  - Hypotension [Unknown]
